FAERS Safety Report 10396574 (Version 1)
Quarter: 2014Q1

REPORT INFORMATION
  Report Type: Spontaneous
  Country: US (occurrence: None)
  Receive Date: 20130606
  Receipt Date: 20130606
  Transmission Date: 20141002
  Serious: No
  Sender: FDA-Public Use
  Company Number: 2013BAX015108

PATIENT
  Age: 49 Year
  Sex: Female

DRUGS (1)
  1. GAMMAGARD LIQUID [Suspect]
     Indication: IMMUNODEFICIENCY COMMON VARIABLE
     Dosage: 15 GRAMS/ 150 ML (10 GM)
     Route: 058
     Dates: start: 20130415, end: 20130415

REACTIONS (2)
  - Infusion site swelling [None]
  - Infusion site pain [None]
